FAERS Safety Report 8185740-3 (Version None)
Quarter: 2012Q1

REPORT INFORMATION
  Report Type: 
  Country: None (occurrence: None)
  Receive Date: 20120305
  Receipt Date: 20120224
  Transmission Date: 20120608
  Serious: Yes (Other)
  Sender: FDA-Public Use
  Company Number: US-AMGEN-USASP2011068445

PATIENT
  Age: 64 Year
  Sex: Female
  Weight: 82.54 kg

DRUGS (8)
  1. CELEXA [Concomitant]
     Dosage: UNK
  2. XGEVA [Suspect]
     Indication: METASTASES TO BONE
     Dosage: 120 MG, Q3WK
     Route: 058
     Dates: start: 20111109
  3. TOPROL-XL [Concomitant]
     Dosage: UNK
  4. XELODA [Concomitant]
     Dosage: 1500 MG, BID
     Dates: start: 20111107
  5. VITAMIN E                          /00110501/ [Concomitant]
     Dosage: UNK
  6. SYNTHROID [Concomitant]
     Dosage: UNK
  7. DIOVAN HCT [Concomitant]
     Dosage: UNK
  8. IBUPROFEN (ADVIL) [Concomitant]
     Dosage: UNK

REACTIONS (2)
  - HYPOCALCAEMIA [None]
  - HYPERTRIGLYCERIDAEMIA [None]
